FAERS Safety Report 6169353-0 (Version None)
Quarter: 2009Q2

REPORT INFORMATION
  Report Type: 
  Country: None (occurrence: None)
  Receive Date: 20090428
  Receipt Date: 20090415
  Transmission Date: 20091009
  Serious: Yes (Disabling)
  Sender: FDA-Public Use
  Company Number: GB-RANBAXY-2009RR-23543

PATIENT
  Age: 75 Year
  Sex: Female

DRUGS (6)
  1. PERINDOPRIL [Suspect]
  2. ACTONEL [Suspect]
     Indication: OSTEOPOROTIC FRACTURE
     Dosage: UNK
     Route: 048
  3. PRAVASTATIN [Suspect]
  4. CALCICHEW [Concomitant]
  5. DOCUSATE [Concomitant]
  6. LEVOTHYROXINE SODIUM [Concomitant]
     Dosage: 100 UG, QD

REACTIONS (2)
  - PERIPHERAL SENSORY NEUROPATHY [None]
  - WALKING DISABILITY [None]
